FAERS Safety Report 4821089-1 (Version None)
Quarter: 2005Q4

REPORT INFORMATION
  Report Type: 
  Country: None (occurrence: None)
  Receive Date: 20051104
  Receipt Date: 20050414
  Transmission Date: 20060501
  Serious: Yes (Other)
  Sender: FDA-Public Use
  Company Number: US-MERCK-0504USA02852

PATIENT
  Age: 65 Year
  Sex: Male
  Weight: 77 kg

DRUGS (5)
  1. VIOXX [Suspect]
     Indication: OSTEOARTHRITIS
     Route: 048
     Dates: start: 19990101, end: 20030101
  2. VIOXX [Suspect]
     Indication: PAIN
     Route: 048
     Dates: start: 19990101, end: 20030101
  3. SYNTHROID [Concomitant]
     Route: 065
  4. ZANTAC [Concomitant]
     Route: 065
  5. PREDNISONE [Concomitant]
     Route: 065

REACTIONS (3)
  - ABDOMINAL PAIN UPPER [None]
  - INJURY [None]
  - MYOCARDIAL INFARCTION [None]
